FAERS Safety Report 7298842-0 (Version None)
Quarter: 2011Q1

REPORT INFORMATION
  Report Type: 
  Country: None (occurrence: None)
  Receive Date: 20110217
  Receipt Date: 20110211
  Transmission Date: 20110831
  Serious: Yes (Other)
  Sender: FDA-Public Use
  Company Number: BR-ROCHE-759567

PATIENT
  Sex: Male
  Weight: 48 kg

DRUGS (4)
  1. RIVOTRIL [Suspect]
     Dosage: FREQUENCY: 5 DROPS WHEN NECESSARY
     Route: 048
     Dates: start: 20100701
  2. DIAZEPAM [Suspect]
     Route: 065
  3. RIVOTRIL [Suspect]
     Dosage: FREQUENCY: 1 TABLET WHEN NECESSARY
     Route: 060
  4. TOFRANIL [Concomitant]

REACTIONS (4)
  - DYSPHAGIA [None]
  - BLOOD URIC ACID INCREASED [None]
  - TUBERCULOSIS [None]
  - ABDOMINAL PAIN LOWER [None]
